FAERS Safety Report 10267862 (Version 1)
Quarter: 2014Q2

REPORT INFORMATION
  Report Type: Spontaneous
  Country: US (occurrence: US)
  Receive Date: 20140630
  Receipt Date: 20140630
  Transmission Date: 20141212
  Serious: No
  Sender: FDA-Public Use
  Company Number: US-ASTRAZENECA-2014SE45405

PATIENT
  Age: 59 Year
  Sex: Male

DRUGS (5)
  1. SYMBICORT [Suspect]
     Indication: DYSPNOEA
     Dosage: 160/4.5 MCG 2 PUFFS BID
     Route: 055
     Dates: start: 201312, end: 201406
  2. PREDNISONE [Concomitant]
  3. SINGULAIR [Concomitant]
     Dosage: NR NR
  4. VENTOLIN [Concomitant]
     Dosage: NR PRN
  5. ALBUTEROL [Concomitant]
     Dosage: NR PRN
     Route: 055

REACTIONS (4)
  - Candida infection [Unknown]
  - Dysphonia [Unknown]
  - Fungal infection [Unknown]
  - Off label use [Unknown]
